FAERS Safety Report 4827918-X (Version None)
Quarter: 2005Q4

REPORT INFORMATION
  Report Type: 
  Country: None (occurrence: None)
  Receive Date: 20051114
  Receipt Date: 20051114
  Transmission Date: 20060501
  Serious: Yes (Other)
  Sender: FDA-Public Use
  Company Number: None

PATIENT
  Age: 54 Year
  Sex: Female

DRUGS (3)
  1. POTASSIUM PHOSPHATES [Suspect]
     Dosage: WAS 10.MG, THEN 5MG, SHOULD BE 5MG
  2. SODIUM CHLORIDE [Suspect]
     Dosage: WAS 35.5EG, THEN 30.EG, SHOULD BE 65.5EG
  3. SODIUM ACETATE [Suspect]
     Dosage: WAS 12.EG, THEN 70.EG, SHOULD BE 82.EG

REACTIONS (2)
  - INCORRECT DRUG ADMINISTRATION DURATION [None]
  - MEDICATION ERROR [None]
